FAERS Safety Report 25178802 (Version 1)
Quarter: 2025Q2

REPORT INFORMATION
  Report Type: Other
  Country: US (occurrence: US)
  Receive Date: 20250409
  Receipt Date: 20250409
  Transmission Date: 20250716
  Serious: Yes (Hospitalization, Other)
  Sender: TOLMAR
  Company Number: US-TOLMAR, INC.-25US057958

PATIENT
  Age: 63 Year
  Sex: Male

DRUGS (6)
  1. ELIGARD [Suspect]
     Active Substance: LEUPROLIDE ACETATE
     Indication: Product used for unknown indication
  2. ELIGARD [Suspect]
     Active Substance: LEUPROLIDE ACETATE
     Indication: Product used for unknown indication
  3. ORGOVYX [Suspect]
     Active Substance: RELUGOLIX
     Indication: Prostate cancer
     Route: 048
  4. ORGOVYX [Suspect]
     Active Substance: RELUGOLIX
     Dosage: 120 MILLIGRAM, QD
     Route: 048
     Dates: start: 20240409
  5. HEPARIN SODIUM [Suspect]
     Active Substance: HEPARIN SODIUM
     Indication: Product used for unknown indication
  6. NEULASTA [Suspect]
     Active Substance: PEGFILGRASTIM
     Indication: White blood cell disorder

REACTIONS (9)
  - Localised infection [Unknown]
  - Metastases to liver [Unknown]
  - Type 2 diabetes mellitus [Unknown]
  - White blood cell disorder [Unknown]
  - Joint swelling [Unknown]
  - Rash [Unknown]
  - Bone pain [Unknown]
  - Fatigue [Unknown]
  - Pain [Unknown]

NARRATIVE: CASE EVENT DATE: 20241217
